FAERS Safety Report 6125933-X (Version None)
Quarter: 2009Q1

REPORT INFORMATION
  Report Type: 
  Country: None (occurrence: None)
  Receive Date: 20090304
  Receipt Date: 20080409
  Transmission Date: 20090719
  Serious: Yes (Hospitalization)
  Sender: FDA-Public Use
  Company Number: 273980

PATIENT
  Age: 27 Year
  Sex: Male
  Weight: 58.5 kg

DRUGS (1)
  1. NOVOSEVEN [Suspect]
     Indication: FACTOR VIII DEFICIENCY
     Dosage: 4 MG, INTRAVENOUS
     Route: 042
     Dates: start: 19930101

REACTIONS (1)
  - THERAPEUTIC RESPONSE DECREASED [None]
